FAERS Safety Report 17556163 (Version 1)
Quarter: 2020Q1

REPORT INFORMATION
  Report Type: Spontaneous
  Country: US (occurrence: US)
  Receive Date: 20200318
  Receipt Date: 20200318
  Transmission Date: 20200409
  Serious: No
  Sender: FDA-Public Use
  Company Number: US-THERAPEUTICSMD-2020TMD00262

PATIENT
  Age: 80 Year
  Sex: Female

DRUGS (3)
  1. IMVEXXY [Suspect]
     Active Substance: ESTRADIOL
     Dosage: 4 ?G, 2X/WEEK AT BEDTIME
     Route: 067
     Dates: start: 20200107, end: 20200113
  2. IMVEXXY [Suspect]
     Active Substance: ESTRADIOL
     Dosage: 4 ?G, 1X/DAY AT BEDTIME FOR ABOUT 3-4 DAYS OR MAYBE A WEEK
     Route: 067
     Dates: start: 202001, end: 202001
  3. IMVEXXY [Suspect]
     Active Substance: ESTRADIOL
     Dosage: 4 ?G, EVERY 48 HOURS AT BEDTIME
     Route: 067
     Dates: start: 20200113, end: 202001

REACTIONS (8)
  - Abdominal pain upper [Not Recovered/Not Resolved]
  - Nausea [Recovering/Resolving]
  - Tinnitus [Unknown]
  - Unevaluable event [Unknown]
  - Colitis ulcerative [Unknown]
  - Malaise [Unknown]
  - Headache [Not Recovered/Not Resolved]
  - Vomiting [Recovering/Resolving]

NARRATIVE: CASE EVENT DATE: 202001
